FAERS Safety Report 14159541 (Version 2)
Quarter: 2018Q1

REPORT INFORMATION
  Report Type: Spontaneous
  Country: US (occurrence: US)
  Receive Date: 20171106
  Receipt Date: 20180220
  Transmission Date: 20180508
  Serious: No
  Sender: FDA-Public Use
  Company Number: US-PFIZER INC-2017305238

PATIENT
  Age: 19 Year
  Sex: Female
  Weight: 70 kg

DRUGS (2)
  1. GENOTROPIN [Suspect]
     Active Substance: SOMATROPIN
     Indication: BLOOD GROWTH HORMONE
     Dosage: 0.8 MG, ONCE DAILY (IN ARM OR BUTTOCKS)
     Dates: end: 201707
  2. GENOTROPIN [Suspect]
     Active Substance: SOMATROPIN
     Dosage: 0.4 MG, UNK
     Dates: start: 201707

REACTIONS (5)
  - Device issue [Not Recovered/Not Resolved]
  - Product administered at inappropriate site [Unknown]
  - Intentional product use issue [Unknown]
  - Fatigue [Unknown]
  - Drug dose omission [Not Recovered/Not Resolved]

NARRATIVE: CASE EVENT DATE: 201708
